FAERS Safety Report 11088251 (Version 6)
Quarter: 2016Q4

REPORT INFORMATION
  Report Type: Spontaneous
  Country: US (occurrence: US)
  Receive Date: 20150504
  Receipt Date: 20161201
  Transmission Date: 20170206
  Serious: Yes (Hospitalization, Other)
  Sender: FDA-Public Use
  Company Number: US-PFIZER INC-2015152178

PATIENT
  Age: 91 Year
  Sex: Female
  Weight: 71.66 kg

DRUGS (67)
  1. POTASSIUM CHLORIDE. [Concomitant]
     Active Substance: POTASSIUM CHLORIDE
     Dosage: 10 MEQ, 3X/DAY
     Route: 048
  2. OMEPRAZOLE. [Concomitant]
     Active Substance: OMEPRAZOLE
     Indication: GASTROOESOPHAGEAL REFLUX DISEASE
     Dosage: 20 MG, 1X/DAY(TAKE 1 EVERY MORNING AT BREAKFAST)
     Route: 048
  3. MONTELUKAST [Concomitant]
     Active Substance: MONTELUKAST SODIUM
     Indication: HYPERSENSITIVITY
  4. NEURONTIN [Concomitant]
     Active Substance: GABAPENTIN
     Indication: DYSPNOEA
  5. TYLENOL EXTRA STRENGTH [Concomitant]
     Active Substance: ACETAMINOPHEN
     Indication: PAIN
     Dosage: 2 DF, AS NEEDED
  6. TYLENOL EXTRA STRENGTH [Concomitant]
     Active Substance: ACETAMINOPHEN
     Indication: PAIN IN EXTREMITY
  7. REQUIP [Concomitant]
     Active Substance: ROPINIROLE HYDROCHLORIDE
     Dosage: 2 MG, 1X/DAY(QHS)
     Dates: start: 20150827
  8. LEVOTHYROXINE. [Concomitant]
     Active Substance: LEVOTHYROXINE
     Indication: HYPERTHYROIDISM
     Dosage: 50 ?G, ALTERNATE DAY(1AM BEFORE BREAKFAST)
     Route: 048
  9. VITAMIN D3 [Concomitant]
     Active Substance: CHOLECALCIFEROL
     Indication: BONE DISORDER
     Dosage: 5000 IU, 3X/DAY
     Route: 048
  10. BENADRYL [Concomitant]
     Active Substance: DIPHENHYDRAMINE HYDROCHLORIDE
     Indication: RASH
     Dosage: 25 MG, AS NEEDED
     Route: 048
  11. ZENPEP [Concomitant]
     Active Substance: PANCRELIPASE AMYLASE\PANCRELIPASE LIPASE\PANCRELIPASE PROTEASE
     Dosage: 25000 IU, UNK
     Route: 048
  12. REVATIO [Suspect]
     Active Substance: SILDENAFIL CITRATE
     Indication: CHRONIC OBSTRUCTIVE PULMONARY DISEASE
     Dosage: 20 MG, 3X/DAY
     Route: 048
  13. WARFARIN [Concomitant]
     Active Substance: WARFARIN
     Indication: BLOOD DISORDER
     Dosage: 6 DAYS ON 3 MG, 1 DAY ON 2 MG
     Dates: start: 2003
  14. WARFARIN [Concomitant]
     Active Substance: WARFARIN
     Dosage: UNK (TAKES 1MG ON FRI AND 1MG ON MONDAY; ALL OTHER DAYS 3MG)
     Dates: start: 2003
  15. MONTELUKAST [Concomitant]
     Active Substance: MONTELUKAST SODIUM
     Indication: DYSPNOEA
     Dosage: 10 MG, 1X/DAY (BED TIME)
     Route: 048
  16. SYMBICORT [Concomitant]
     Active Substance: BUDESONIDE\FORMOTEROL FUMARATE DIHYDRATE
     Dosage: 1 DF, DAILY
     Route: 055
     Dates: start: 20150602
  17. LASIX [Concomitant]
     Active Substance: FUROSEMIDE
     Indication: FLUID RETENTION
     Dosage: 40MG IN AM, 20MG IN PM
     Route: 048
  18. REQUIP [Concomitant]
     Active Substance: ROPINIROLE HYDROCHLORIDE
     Indication: RESTLESS LEGS SYNDROME
     Dosage: 1 MG, 2X/DAY (NOON AND BEFORE BEDTIME)
     Route: 048
  19. VITAMIN D3 [Concomitant]
     Active Substance: CHOLECALCIFEROL
     Indication: RENAL DISORDER
     Dosage: 1000 IU, 2X/DAY
     Route: 048
  20. VITAMIN D3 [Concomitant]
     Active Substance: CHOLECALCIFEROL
     Indication: FUNCTIONAL GASTROINTESTINAL DISORDER
  21. MAGNESIUM OXIDE. [Concomitant]
     Active Substance: MAGNESIUM OXIDE
     Indication: CARDIAC DISORDER
  22. GABAPENTIN. [Concomitant]
     Active Substance: GABAPENTIN
     Indication: RESTLESS LEGS SYNDROME
     Dosage: 500 MG, (3 AT NIGHT AND 2 AT LUNCH)
  23. AZOPT [Concomitant]
     Active Substance: BRINZOLAMIDE
     Dosage: 2 GTT, 1X/DAY
  24. VENTOLIN HFA [Concomitant]
     Active Substance: ALBUTEROL SULFATE
     Indication: DYSPNOEA
     Dosage: 2 DF, AS NEEDED (AM PM 1 SPRAY A TIME)
     Route: 055
  25. SYMBICORT [Concomitant]
     Active Substance: BUDESONIDE\FORMOTEROL FUMARATE DIHYDRATE
     Dosage: BUDESONIDE 80 MCG/FORMOTEROL FUMARATE 4.5 MCG, 2X/DAY
  26. SINGULAIR [Concomitant]
     Active Substance: MONTELUKAST SODIUM
     Indication: HYPERSENSITIVITY
     Dosage: 10 MG, 3X/DAY
     Route: 048
  27. LATANOPROST. [Concomitant]
     Active Substance: LATANOPROST
     Indication: GLAUCOMA
     Dosage: 1 GTT, 1X/DAY AT BEDTIME
  28. MUCINEX [Concomitant]
     Active Substance: GUAIFENESIN
     Indication: COUGH
     Dosage: 600 MG, AS NEEDED
     Route: 048
     Dates: start: 2003
  29. MUCINEX [Concomitant]
     Active Substance: GUAIFENESIN
     Indication: RHINORRHOEA
  30. REVATIO [Suspect]
     Active Substance: SILDENAFIL CITRATE
     Indication: PULMONARY HYPERTENSION
     Dosage: 20 MG, 3X/DAY ((1) TAB PO TID (AM, NOON + EVENING))
     Route: 048
     Dates: start: 2008
  31. FUROSEMIDE. [Concomitant]
     Active Substance: FUROSEMIDE
     Dosage: 60 MG, DAILY (40MG IN THE MORNING AND 20MG IN THE EVENING)
  32. ROPINIROLE. [Concomitant]
     Active Substance: ROPINIROLE
     Indication: BACK DISORDER
  33. NEURONTIN [Concomitant]
     Active Substance: GABAPENTIN
     Indication: PAIN IN EXTREMITY
  34. VITAMIN D3 [Concomitant]
     Active Substance: CHOLECALCIFEROL
     Indication: BREAST DISORDER
  35. VITAMIN E [Concomitant]
     Active Substance: .ALPHA.-TOCOPHEROL
     Dosage: 400 IU, DAILY
     Route: 048
  36. GABAPENTIN. [Concomitant]
     Active Substance: GABAPENTIN
     Indication: INTERVERTEBRAL DISC DISORDER
  37. AZOPT [Concomitant]
     Active Substance: BRINZOLAMIDE
     Dosage: 1% IN LEFT EYE
     Route: 047
     Dates: end: 201512
  38. WARFARIN [Concomitant]
     Active Substance: WARFARIN
     Dosage: UNK (CHANGE DAILY 1MG TO 3MG)
     Route: 048
  39. NEURONTIN [Concomitant]
     Active Substance: GABAPENTIN
     Indication: BACK PAIN
     Dosage: 100 MG, 4 IN PM BEFORE BEDTIME ABOUT 6 YEARS
  40. POTASSIUM [Concomitant]
     Active Substance: POTASSIUM
     Indication: BONE DISORDER
     Dosage: 10 MEQ, 3X/DAY (3 DAILY WITH MEALS)
     Route: 048
  41. MUCINEX [Concomitant]
     Active Substance: GUAIFENESIN
     Indication: HYPERSENSITIVITY
  42. BENADRYL [Concomitant]
     Active Substance: DIPHENHYDRAMINE HYDROCHLORIDE
     Indication: SWOLLEN TONGUE
  43. BENADRYL [Concomitant]
     Active Substance: DIPHENHYDRAMINE HYDROCHLORIDE
     Indication: LIP SWELLING
  44. BENADRYL [Concomitant]
     Active Substance: DIPHENHYDRAMINE HYDROCHLORIDE
     Indication: HYPERSENSITIVITY
  45. ROPINIROLE HCL [Concomitant]
     Active Substance: ROPINIROLE HYDROCHLORIDE
     Indication: DYSPNOEA
     Dosage: 2 MG, 1X/DAY (Q HS)
     Dates: start: 20150827
  46. GABAPENTIN. [Concomitant]
     Active Substance: GABAPENTIN
     Indication: DYSPNOEA
     Dosage: 100 MG, 3X/DAY
     Route: 048
     Dates: start: 20150827
  47. WARFARIN [Concomitant]
     Active Substance: WARFARIN
     Dosage: 2 MG, UNK (SOMETIME 2 MG, SOMETIME, MOSTLY 3 MG, AFTER EVENING MEAL WITH NICE AMOUNT OF WATER)
  48. SIMVASTATIN. [Concomitant]
     Active Substance: SIMVASTATIN
     Indication: BLOOD CHOLESTEROL ABNORMAL
     Dosage: 40 MG, 1X/DAY BEDTIME PM
     Route: 048
  49. SYMBICORT [Concomitant]
     Active Substance: BUDESONIDE\FORMOTEROL FUMARATE DIHYDRATE
     Indication: DYSPNOEA
     Dosage: 2 DF, 2X/DAY
     Route: 055
     Dates: end: 20150527
  50. CONCON [Concomitant]
     Indication: BLOOD POTASSIUM ABNORMAL
     Dosage: UNK
  51. TYLENOL EXTRA STRENGTH [Concomitant]
     Active Substance: ACETAMINOPHEN
     Indication: BACK PAIN
  52. TYLENOL EXTRA STRENGTH [Concomitant]
     Active Substance: ACETAMINOPHEN
     Indication: HEADACHE
  53. OSTEO BI-FLEX [Concomitant]
     Active Substance: CHONDROITIN SULFATE A\GLUCOSAMINE
     Indication: BONE DISORDER
     Dosage: 1 DF, 1X/DAY
     Route: 048
  54. POTASSIUM [Concomitant]
     Active Substance: POTASSIUM
     Indication: CARDIAC DISORDER
  55. VITAMIN E [Concomitant]
     Active Substance: .ALPHA.-TOCOPHEROL
     Indication: LUNG DISORDER
     Dosage: 1200 IU, DAILY
     Dates: start: 1958
  56. FUROSEMIDE. [Concomitant]
     Active Substance: FUROSEMIDE
     Indication: DIURETIC THERAPY
     Dosage: 40 MG, 1X/DAY [(2X20) AT BREAKFAST 20MG WITH SUPPN]
     Route: 048
  57. ROPINIROLE. [Concomitant]
     Active Substance: ROPINIROLE
     Indication: RESTLESS LEGS SYNDROME
     Dosage: 4 MG, (2 AT BEDTIME AND 2 AT LUNCHTIME)
     Route: 048
  58. SILDENAFIL. [Concomitant]
     Active Substance: SILDENAFIL
     Indication: LUNG DISORDER
     Dosage: 20 MG, UNK
     Route: 048
  59. MUCINEX [Concomitant]
     Active Substance: GUAIFENESIN
     Indication: SECRETION DISCHARGE
  60. DORZOLAMIDE [Concomitant]
     Active Substance: DORZOLAMIDE
     Indication: GLAUCOMA
     Dosage: 2 %, UNK
     Dates: start: 201512
  61. AZOPT [Concomitant]
     Active Substance: BRINZOLAMIDE
     Indication: GLAUCOMA
     Dosage: 1 GTT, 2X/DAY (AM+ PM)
  62. WARFARIN [Concomitant]
     Active Substance: WARFARIN
     Dosage: 3 MG, UNK (SOMETIME 2 MG, SOMETIME, MOSTLY 3 MG, AFTER EVENING MEAL WITH NICE AMOUNT OF WATER)
  63. SYMBICORT [Concomitant]
     Active Substance: BUDESONIDE\FORMOTEROL FUMARATE DIHYDRATE
     Dosage: UNK, 2X/DAY
  64. CALCITONIN [Concomitant]
     Active Substance: CALCITONIN
     Indication: BONE DISORDER
     Dosage: UNK
     Route: 045
  65. OSTEO BI-FLEX [Concomitant]
     Active Substance: CHONDROITIN SULFATE A\GLUCOSAMINE
     Indication: ARTHROPATHY
  66. CALTRATE 600+D [Concomitant]
     Indication: BONE DENSITY DECREASED
     Dosage: 2 DF, 3X/DAY (1 AM+ PM )
     Route: 048
  67. MAGNESIUM OXIDE. [Concomitant]
     Active Substance: MAGNESIUM OXIDE
     Indication: BONE DISORDER
     Dosage: 400 MG, 3X/DAY
     Route: 048

REACTIONS (8)
  - Myopathy [Unknown]
  - Burning sensation [Unknown]
  - Ocular vascular disorder [Unknown]
  - Condition aggravated [Not Recovered/Not Resolved]
  - Blindness [Unknown]
  - Body temperature decreased [Unknown]
  - Sinusitis [Not Recovered/Not Resolved]
  - Diarrhoea [Unknown]

NARRATIVE: CASE EVENT DATE: 2014
